FAERS Safety Report 13151536 (Version 5)
Quarter: 2017Q1

REPORT INFORMATION
  Report Type: Spontaneous
  Country: HU (occurrence: HU)
  Receive Date: 20170125
  Receipt Date: 20170310
  Transmission Date: 20170428
  Serious: Yes (Hospitalization, Other)
  Sender: FDA-Public Use
  Company Number: HU-PFIZER INC-2017027520

PATIENT
  Age: 27 Year
  Sex: Male
  Weight: 65 kg

DRUGS (19)
  1. ZAVEDOS [Suspect]
     Active Substance: IDARUBICIN
     Indication: ACUTE MYELOID LEUKAEMIA
     Dosage: 19 MG, 3X
     Route: 042
     Dates: start: 20160806, end: 20160905
  2. BISOPROLOL [Concomitant]
     Active Substance: BISOPROLOL
     Dosage: UNK
  3. BENDAMUSTINE [Suspect]
     Active Substance: BENDAMUSTINE
     Indication: ACUTE MYELOID LEUKAEMIA
     Dosage: 100 MG + 200 MG
     Route: 042
     Dates: start: 20161222, end: 20170106
  4. DUROGESIC [Concomitant]
     Active Substance: FENTANYL
     Dosage: UNK
  5. FLUDARA [Suspect]
     Active Substance: FLUDARABINE PHOSPHATE
     Indication: ACUTE MYELOID LEUKAEMIA
     Dosage: 50 MG, 5X
     Route: 042
     Dates: start: 20160806, end: 20160905
  6. ALLOPURINOL. [Concomitant]
     Active Substance: ALLOPURINOL
     Dosage: UNK
  7. CYTOSAR [Suspect]
     Active Substance: CYTARABINE
     Dosage: 3.8 G, 5X
     Route: 042
     Dates: start: 20160923, end: 20161013
  8. GEMZAR [Suspect]
     Active Substance: GEMCITABINE HYDROCHLORIDE
     Indication: ACUTE MYELOID LEUKAEMIA
     Dosage: 1500 MG, UNK
     Route: 042
     Dates: start: 20161222, end: 20170106
  9. VEPESIDE [Suspect]
     Active Substance: ETOPOSIDE
     Dosage: 190 MG, 3X
     Route: 042
     Dates: start: 20161129, end: 20161213
  10. CARBOPLATIN. [Suspect]
     Active Substance: CARBOPLATIN
     Indication: ACUTE MYELOID LEUKAEMIA
     Dosage: 800 MG, UNK
     Route: 042
     Dates: start: 20161101, end: 20161121
  11. PANADOL [Concomitant]
     Active Substance: ACETAMINOPHEN
     Dosage: UNK
  12. HOLOXAN [Suspect]
     Active Substance: IFOSFAMIDE
     Indication: ACUTE MYELOID LEUKAEMIA
     Dosage: 9.5 G, UNK
     Route: 042
     Dates: start: 20161101, end: 20161121
  13. ZAVEDOS [Suspect]
     Active Substance: IDARUBICIN
     Dosage: 19 MG, 2X
     Route: 042
     Dates: start: 20160923, end: 20161013
  14. CYTOSAR [Suspect]
     Active Substance: CYTARABINE
     Indication: ACUTE MYELOID LEUKAEMIA
     Dosage: 3.8 G, 5X
     Route: 042
     Dates: start: 20160806, end: 20160905
  15. VEPESIDE [Suspect]
     Active Substance: ETOPOSIDE
     Indication: ACUTE MYELOID LEUKAEMIA
     Dosage: 200 MG, 2X
     Route: 042
     Dates: start: 20160923, end: 20161013
  16. HOLOXAN [Suspect]
     Active Substance: IFOSFAMIDE
     Dosage: 9.5 G, UNK
     Route: 042
     Dates: start: 20161129, end: 20161213
  17. FLUDARA [Suspect]
     Active Substance: FLUDARABINE PHOSPHATE
     Dosage: 50 MG, 5X
     Route: 042
     Dates: start: 20160923, end: 20161013
  18. VEPESIDE [Suspect]
     Active Substance: ETOPOSIDE
     Dosage: 190 MG, 3X
     Route: 042
     Dates: start: 20161101, end: 20161121
  19. CARBOPLATIN. [Suspect]
     Active Substance: CARBOPLATIN
     Dosage: 800 MG, UNK
     Route: 042
     Dates: start: 20161129, end: 20161213

REACTIONS (7)
  - Febrile neutropenia [Recovered/Resolved]
  - Tonsillitis [Recovered/Resolved]
  - Groin infection [Recovered/Resolved]
  - Hyponatraemia [Recovered/Resolved]
  - Hypochloraemia [Recovered/Resolved]
  - Inappropriate antidiuretic hormone secretion [Recovered/Resolved]
  - Neoplasm progression [Not Recovered/Not Resolved]

NARRATIVE: CASE EVENT DATE: 201608
